FAERS Safety Report 25313357 (Version 1)
Quarter: 2025Q2

REPORT INFORMATION
  Report Type: Spontaneous
  Country: US (occurrence: None)
  Receive Date: 20250513
  Receipt Date: 20250513
  Transmission Date: 20250717
  Serious: Yes (Other)
  Sender: FDA-CTU
  Company Number: None

PATIENT
  Age: 46 Year
  Sex: Female

DRUGS (1)
  1. VCF CONTRACEPTIVE [Suspect]
     Active Substance: NONOXYNOL-9
     Indication: Contraception
     Dates: start: 20250512

REACTIONS (2)
  - Vulvovaginal pain [None]
  - Vaginal odour [None]

NARRATIVE: CASE EVENT DATE: 20250512
